FAERS Safety Report 12909936 (Version 1)
Quarter: 2016Q4

REPORT INFORMATION
  Report Type: Report from Study
  Country: IT (occurrence: IT)
  Receive Date: 20161104
  Receipt Date: 20161104
  Transmission Date: 20170207
  Serious: Yes (Other)
  Sender: FDA-Public Use
  Company Number: IT-BRISTOL-MYERS SQUIBB COMPANY-BMS-2016-090207

PATIENT
  Age: 61 Year
  Sex: Male

DRUGS (1)
  1. NIVOLUMAB [Suspect]
     Active Substance: NIVOLUMAB
     Indication: NON-SMALL CELL LUNG CANCER
     Dosage: 3 MG/KG, Q2WK
     Route: 042

REACTIONS (14)
  - Tenosynovitis [Unknown]
  - Dupuytren^s contracture [Unknown]
  - Constipation [Unknown]
  - Hypothyroidism [Unknown]
  - Blood thyroid stimulating hormone increased [Unknown]
  - Blood cortisol decreased [Unknown]
  - Asthenia [Unknown]
  - Cerebral ischaemia [Unknown]
  - Neuralgia [Unknown]
  - Anaemia [Unknown]
  - Abdominal distension [Unknown]
  - Confusional state [Unknown]
  - Pain of skin [Unknown]
  - Somnolence [Unknown]

NARRATIVE: CASE EVENT DATE: 20160508
